FAERS Safety Report 6449985-2 (Version None)
Quarter: 2009Q4

REPORT INFORMATION
  Report Type: 
  Country: None (occurrence: None)
  Receive Date: 20091120
  Receipt Date: 20091120
  Transmission Date: 20100525
  Serious: Yes (Life-Threatening, Disabling)
  Sender: FDA-Public Use
  Company Number: None

PATIENT
  Age: 55 Year
  Sex: Male
  Weight: 108.4097 kg

DRUGS (1)
  1. TACROLIMUS [Suspect]
     Indication: PRODUCT SUBSTITUTION ISSUE
     Dosage: 2MG TWICE DAILY PO
     Route: 048
     Dates: start: 20090902, end: 20090917

REACTIONS (5)
  - DRUG LEVEL DECREASED [None]
  - DYSPNOEA [None]
  - HEART TRANSPLANT REJECTION [None]
  - MALABSORPTION [None]
  - PRODUCT SUBSTITUTION ISSUE [None]
